FAERS Safety Report 25090474 (Version 1)
Quarter: 2025Q1

REPORT INFORMATION
  Report Type: Spontaneous
  Country: US (occurrence: US)
  Receive Date: 20250318
  Receipt Date: 20250318
  Transmission Date: 20250409
  Serious: Yes (Other)
  Sender: PFIZER
  Company Number: US-PFIZER INC-202500058114

PATIENT
  Age: 53 Year
  Sex: Female

DRUGS (1)
  1. VELSIPITY [Suspect]
     Active Substance: ETRASIMOD ARGININE
     Indication: Colitis ulcerative
     Dosage: 2 MG ONCE A DAY
     Dates: start: 202410

REACTIONS (2)
  - Colitis ulcerative [Unknown]
  - Therapeutic product effect incomplete [Unknown]
